FAERS Safety Report 6245100-9 (Version None)
Quarter: 2009Q2

REPORT INFORMATION
  Report Type: 
  Country: None (occurrence: None)
  Receive Date: 20090619
  Receipt Date: 20090331
  Transmission Date: 20091009
  Serious: No
  Sender: FDA-Public Use
  Company Number: SPV1-2009-00522

PATIENT
  Age: 38 Year
  Sex: Female
  Weight: 77.1 kg

DRUGS (5)
  1. VYVANSE [Suspect]
     Indication: SLUGGISHNESS
     Dosage: 30 MG, 1X/DAY:QD, ORAL ; 30 MG, 1X/DAY:QD, ORAL
     Route: 048
     Dates: start: 20090127, end: 20090201
  2. VYVANSE [Suspect]
     Indication: SLUGGISHNESS
     Dosage: 30 MG, 1X/DAY:QD, ORAL ; 30 MG, 1X/DAY:QD, ORAL
     Route: 048
     Dates: start: 20090201, end: 20090327
  3. CELEXA /00582602/ (CITALOPRAM HYDROBROMIDE) [Concomitant]
  4. GABAPIN (GABAPENTIN) [Concomitant]
  5. SUBUTEX [Concomitant]

REACTIONS (14)
  - AGITATION [None]
  - ANOREXIA [None]
  - ANXIETY [None]
  - DEPRESSION [None]
  - DISTURBANCE IN ATTENTION [None]
  - DRY MOUTH [None]
  - FEELING JITTERY [None]
  - FEELING OF BODY TEMPERATURE CHANGE [None]
  - HEADACHE [None]
  - HYPERHIDROSIS [None]
  - IMPULSIVE BEHAVIOUR [None]
  - INSOMNIA [None]
  - OFF LABEL USE [None]
  - PILOERECTION [None]
